FAERS Safety Report 18345780 (Version 1)
Quarter: 2020Q4

REPORT INFORMATION
  Report Type: Spontaneous
  Country: IE (occurrence: IE)
  Receive Date: 20201005
  Receipt Date: 20201005
  Transmission Date: 20210114
  Serious: Yes (Hospitalization)
  Sender: FDA-Public Use
  Company Number: IE-MYLANLABS-2020M1084003

PATIENT
  Sex: Male

DRUGS (2)
  1. CLOZARIL [Suspect]
     Active Substance: CLOZAPINE
     Dosage: LESS THAN 12.5MG
     Dates: start: 2020
  2. CLOZARIL [Suspect]
     Active Substance: CLOZAPINE
     Indication: SCHIZOPHRENIA
     Dosage: UNK
     Route: 048
     Dates: start: 20021006, end: 20200928

REACTIONS (5)
  - Abdominal pain [Unknown]
  - Intestinal perforation [Unknown]
  - Constipation [Unknown]
  - Megacolon [Unknown]
  - Hypotension [Unknown]
